FAERS Safety Report 9114807 (Version 1)
Quarter: 2013Q1

REPORT INFORMATION
  Report Type: Spontaneous
  Country: HU (occurrence: HU)
  Receive Date: 20130208
  Receipt Date: 20130208
  Transmission Date: 20140127
  Serious: Yes (Other)
  Sender: FDA-Public Use
  Company Number: HU-PFIZER INC-2013047959

PATIENT
  Age: 57 Year
  Sex: Female

DRUGS (6)
  1. ALPRAZOLAM [Suspect]
     Indication: DEPRESSION
     Dosage: 1 MG, 3X/DAY
     Dates: start: 20120319
  2. ALPRAZOLAM [Suspect]
     Dosage: 0.5 MG, 3X/DAY
     Dates: start: 20120405
  3. ALPRAZOLAM [Suspect]
     Dosage: 0.25 MG, 3X/DAY
  4. CITALOPRAM [Suspect]
     Indication: DEPRESSION
     Dosage: 20 MG, UNK
     Dates: start: 20120319
  5. QUETIAPINE [Suspect]
     Indication: SUICIDAL IDEATION
     Dosage: 100 MG, 2X/DAY
     Dates: start: 20120322
  6. QUETIAPINE [Suspect]
     Dosage: 100 MG, 1X/DAY
     Dates: start: 20120405

REACTIONS (2)
  - Suicidal ideation [Recovering/Resolving]
  - Depression [Recovering/Resolving]
